FAERS Safety Report 9193578 (Version 1)
Quarter: 2013Q1

REPORT INFORMATION
  Report Type: Spontaneous
  Country: US (occurrence: None)
  Receive Date: 20130325
  Receipt Date: 20130325
  Transmission Date: 20140127
  Serious: Yes (Other)
  Sender: FDA-Public Use
  Company Number: None

PATIENT
  Age: 10 Year
  Sex: Male
  Weight: 68 kg

DRUGS (1)
  1. SINGULAIR [Suspect]
     Indication: MULTIPLE ALLERGIES
     Dosage: 1 TABLET
     Route: 048
     Dates: start: 20080401, end: 20130311

REACTIONS (7)
  - Insomnia [None]
  - Middle insomnia [None]
  - Myalgia [None]
  - Arthralgia [None]
  - Irritability [None]
  - Anger [None]
  - Depression [None]
